FAERS Safety Report 10020582 (Version 1)
Quarter: 2014Q1

REPORT INFORMATION
  Report Type: Report from Study
  Country: NL (occurrence: TR)
  Receive Date: 20140319
  Receipt Date: 20140319
  Transmission Date: 20141002
  Serious: Yes (Death, Hospitalization)
  Sender: FDA-Public Use
  Company Number: PHHY2014TR031526

PATIENT
  Age: 80 Year
  Sex: Male
  Weight: 53 kg

DRUGS (1)
  1. EXJADE [Suspect]
     Indication: THALASSAEMIA BETA
     Dosage: 1500 MG, DAILY
     Dates: start: 2009

REACTIONS (3)
  - Death [Fatal]
  - Dysuria [Unknown]
  - General physical health deterioration [Unknown]
